FAERS Safety Report 6538739-4 (Version None)
Quarter: 2010Q1

REPORT INFORMATION
  Report Type: 
  Country: None (occurrence: None)
  Receive Date: 20100114
  Receipt Date: 20100114
  Transmission Date: 20100710
  Serious: No
  Sender: FDA-Public Use
  Company Number: None

PATIENT
  Sex: Female
  Weight: 63.6 kg

DRUGS (2)
  1. NUCYNTA [Suspect]
     Indication: ARTHRALGIA
     Dosage: 50 TID PO
     Route: 048
  2. NUCYNTA [Suspect]
     Indication: ARTHRALGIA
     Dosage: 75 TID PO
     Route: 048

REACTIONS (6)
  - CHILLS [None]
  - DRUG WITHDRAWAL SYNDROME [None]
  - DYSTONIA [None]
  - HYPERHIDROSIS [None]
  - PAIN [None]
  - TREMOR [None]
